FAERS Safety Report 8709033 (Version 2)
Quarter: 2012Q4

REPORT INFORMATION
  Report Type: 
  Country: GB (occurrence: GB)
  Receive Date: 20120806
  Receipt Date: 20120902
  Transmission Date: 20130627
  Serious: Yes (Other)
  Sender: FDA-Public Use
  Company Number: GB-AMGEN-GBRSP2012047637

PATIENT
  Age: 45 Year
  Sex: Male

DRUGS (1)
  1. ETANERCEPT [Suspect]
     Indication: PSORIASIS
     Dosage: 50 mg, weekly
     Route: 058
     Dates: start: 20080101

REACTIONS (2)
  - Antiphospholipid syndrome [Not Recovered/Not Resolved]
  - Pulmonary embolism [Not Recovered/Not Resolved]
